FAERS Safety Report 8947007 (Version 3)
Quarter: 2013Q1

REPORT INFORMATION
  Report Type: Report from Study
  Country: AT (occurrence: AT)
  Receive Date: 20121205
  Receipt Date: 20130206
  Transmission Date: 20140127
  Serious: Yes (Hospitalization)
  Sender: FDA-Public Use
  Company Number: AT-JNJFOC-20120814587

PATIENT
  Age: 45 Year
  Sex: Male
  Weight: 98 kg

DRUGS (2)
  1. USTEKINUMAB [Suspect]
     Indication: PSORIASIS
     Route: 058
     Dates: start: 201101
  2. CORTICOSTEROIDS [Concomitant]

REACTIONS (3)
  - Psoriasis [Recovered/Resolved]
  - Pulmonary fibrosis [Unknown]
  - Drug ineffective [Recovering/Resolving]
